FAERS Safety Report 4634653-X (Version None)
Quarter: 2005Q2

REPORT INFORMATION
  Report Type: 
  Country: None (occurrence: None)
  Receive Date: 20050411
  Receipt Date: 20050209
  Transmission Date: 20051028
  Serious: Yes (Hospitalization, Other)
  Sender: FDA-Public Use
  Company Number: SU-2005-003120

PATIENT
  Age: 58 Year
  Sex: Female

DRUGS (3)
  1. OLMETEC [Suspect]
     Indication: HYPERTENSION
     Dosage: 20 MG QD PO
     Route: 048
  2. BETABLOCKER [Concomitant]
  3. DIURETIC [Concomitant]

REACTIONS (3)
  - BLOOD PRESSURE INCREASED [None]
  - INSOMNIA [None]
  - TREMOR [None]
